FAERS Safety Report 15243446 (Version 1)
Quarter: 2018Q3

REPORT INFORMATION
  Report Type: Spontaneous
  Country: US (occurrence: US)
  Receive Date: 20180712
  Receipt Date: 20180712
  Transmission Date: 20181010
  Serious: Yes (Congenital Anomaly)
  Sender: FDA-Public Use
  Company Number: None

PATIENT
  Age: 41 Year
  Sex: Male
  Weight: 96.62 kg

DRUGS (1)
  1. TRAMETINIB [Suspect]
     Active Substance: TRAMETINIB
     Indication: LARYNGEAL CANCER
     Dosage: ?          OTHER ROUTE:PEG TUBE?
     Dates: start: 20180517, end: 20180605

REACTIONS (1)
  - Dermatitis acneiform [None]
